FAERS Safety Report 15100959 (Version 1)
Quarter: 2018Q3

REPORT INFORMATION
  Report Type: Spontaneous
  Country: US (occurrence: US)
  Receive Date: 20180703
  Receipt Date: 20180703
  Transmission Date: 20181010
  Serious: No
  Sender: FDA-Public Use
  Company Number: US-PFIZER INC-2018267069

PATIENT
  Age: 53 Year
  Sex: Female
  Weight: 136.5 kg

DRUGS (1)
  1. XELJANZ XR [Suspect]
     Active Substance: TOFACITINIB CITRATE
     Indication: RHEUMATOID ARTHRITIS
     Dosage: 11 MG (1 TABLET), 1X/DAY (EVERY MORNING)
     Route: 048
     Dates: start: 20170925

REACTIONS (1)
  - Infection [Recovered/Resolved]
